FAERS Safety Report 23081077 (Version 2)
Quarter: 2023Q4

REPORT INFORMATION
  Report Type: Spontaneous
  Country: US (occurrence: US)
  Receive Date: 20231018
  Receipt Date: 20231102
  Transmission Date: 20240109
  Serious: Yes (Other)
  Sender: FDA-Public Use
  Company Number: US-BAUSCHBL-2023BNL009970

PATIENT
  Sex: Female

DRUGS (4)
  1. SOOTHE NIGHT TIME [Suspect]
     Active Substance: MINERAL OIL\PETROLATUM
     Indication: Corneal abrasion
     Dosage: EVERY 4 DAYS FOR YEARS
     Route: 065
  2. SOOTHE NIGHT TIME [Suspect]
     Active Substance: MINERAL OIL\PETROLATUM
     Indication: Product use in unapproved indication
  3. INFLUENZA VIRUS VACCINE [Concomitant]
     Active Substance: INFLUENZA VIRUS VACCINE
     Indication: Product used for unknown indication
     Route: 065
  4. COVID-19 BOOSTER [Concomitant]
     Indication: Product used for unknown indication
     Route: 065

REACTIONS (5)
  - Guillain-Barre syndrome [Recovering/Resolving]
  - Therapeutic product effective for unapproved indication [Unknown]
  - Product closure removal difficult [Unknown]
  - Product physical issue [Unknown]
  - Product design issue [Unknown]
